FAERS Safety Report 6235574-1 (Version None)
Quarter: 2009Q2

REPORT INFORMATION
  Report Type: 
  Country: None (occurrence: None)
  Receive Date: 20090616
  Receipt Date: 20090602
  Transmission Date: 20091009
  Serious: Yes (Hospitalization, Other)
  Sender: FDA-Public Use
  Company Number: CHNY2009DE02319

PATIENT
  Age: 88 Year
  Sex: Female

DRUGS (1)
  1. HYOSCINE HBR HYT [Suspect]
     Indication: INCREASED UPPER AIRWAY SECRETION
     Dosage: 1 DF, Q72H, TRANSDERMAL
     Route: 062

REACTIONS (16)
  - APPLICATION SITE EROSION [None]
  - APPLICATION SITE ERYTHEMA [None]
  - APPLICATION SITE PRURITUS [None]
  - CONFUSIONAL STATE [None]
  - DISORIENTATION [None]
  - DISTURBANCE IN ATTENTION [None]
  - DRUG HYPERSENSITIVITY [None]
  - DYSPHAGIA [None]
  - HALLUCINATION [None]
  - HYPERSENSITIVITY [None]
  - MEMORY IMPAIRMENT [None]
  - OFF LABEL USE [None]
  - PNEUMONIA [None]
  - RESTLESSNESS [None]
  - SOMNOLENCE [None]
  - VOMITING [None]
